FAERS Safety Report 11211662 (Version 6)
Quarter: 2017Q1

REPORT INFORMATION
  Report Type: Report from Study
  Country: LT (occurrence: LT)
  Receive Date: 20150623
  Receipt Date: 20170202
  Transmission Date: 20170428
  Serious: Yes (Hospitalization, Other)
  Sender: FDA-Public Use
  Company Number: LT-UCBSA-2015013620

PATIENT
  Age: 83 Year
  Sex: Female
  Weight: 59 kg

DRUGS (8)
  1. LACOSAMIDE EP [Suspect]
     Active Substance: LACOSAMIDE
     Dosage: 50 MG, 2X/DAY (BID)
     Route: 048
     Dates: start: 20141230
  2. METOPROLOL. [Concomitant]
     Active Substance: METOPROLOL
     Indication: HYPERTENSION
     Dosage: 25 MG, ONCE DAILY (QD)
     Route: 048
  3. ASPIRIN N [Concomitant]
     Active Substance: ASPIRIN
     Indication: CEREBRAL ISCHAEMIA
     Dosage: UNKNOWN DSOE
  4. HALOPERIDOL. [Concomitant]
     Active Substance: HALOPERIDOL
     Indication: VOMITING
     Dosage: UNKNOWN DOSE
  5. LACOSAMIDE EP [Suspect]
     Active Substance: LACOSAMIDE
     Indication: PARTIAL SEIZURES
     Dosage: 100 MG, 2X/DAY (BID)
     Route: 048
     Dates: start: 20131210
  6. VALSARTAN AND HYDROCHLOROTHIAZIDE [Concomitant]
     Active Substance: HYDROCHLOROTHIAZIDE\VALSARTAN
     Indication: HYPERTENSION
     Dosage: 160/125 MG, ONCE DAILY (QD)
     Route: 048
  7. DIAZEPAM. [Concomitant]
     Active Substance: DIAZEPAM
     Indication: DIZZINESS
     Dosage: UNKNOWN DSOE
  8. VALSARTAN. [Concomitant]
     Active Substance: VALSARTAN
     Indication: HYPERTENSION
     Dosage: 160 MG, ONCE DAILY (QD)
     Route: 048

REACTIONS (4)
  - Atrial fibrillation [Recovered/Resolved]
  - Vestibular ataxia [Recovered/Resolved]
  - Cerebral ischaemia [Recovered/Resolved]
  - Dizziness [Recovered/Resolved with Sequelae]

NARRATIVE: CASE EVENT DATE: 20150426
